FAERS Safety Report 13731458 (Version 2)
Quarter: 2017Q3

REPORT INFORMATION
  Report Type: Spontaneous
  Country: JP (occurrence: JP)
  Receive Date: 20170707
  Receipt Date: 20170726
  Transmission Date: 20171127
  Serious: Yes (Other)
  Sender: FDA-Public Use
  Company Number: JP-BRISTOL-MYERS SQUIBB COMPANY-BMS-2017-060302

PATIENT
  Sex: Male

DRUGS (1)
  1. ABILIFY [Suspect]
     Active Substance: ARIPIPRAZOLE
     Indication: SCHIZOPHRENIA
     Dosage: 12 MG, UNK
     Route: 048

REACTIONS (8)
  - Hepatic steatosis [Unknown]
  - Hyperlipidaemia [Unknown]
  - Visual impairment [Unknown]
  - Mania [Unknown]
  - Erythema [Unknown]
  - Aggression [Unknown]
  - Hyperglycaemia [Unknown]
  - Akathisia [Unknown]
